FAERS Safety Report 8841120 (Version 2)
Quarter: 2013Q1

REPORT INFORMATION
  Report Type: Spontaneous
  Country: JP (occurrence: JP)
  Receive Date: 20121015
  Receipt Date: 20130222
  Transmission Date: 20140127
  Serious: Yes (Hospitalization, Other)
  Sender: FDA-Public Use
  Company Number: JP-AMGEN-JPNSP2012065111

PATIENT
  Age: 83 Year
  Sex: Male

DRUGS (7)
  1. RANMARK [Suspect]
     Indication: BONE LESION
     Dosage: 8/25/2012,9/29
     Route: 058
     Dates: start: 20120825, end: 20120929
  2. DECADRON                           /00016001/ [Concomitant]
     Dosage: UNKNOWN
     Route: 065
  3. ZOLADEX                            /00732101/ [Concomitant]
     Dosage: UNKNOWN
     Route: 065
  4. CALCICOL [Concomitant]
     Route: 065
     Dates: start: 20120901, end: 20120929
  5. CALCICOL [Concomitant]
     Route: 065
     Dates: start: 20121013, end: 20121117
  6. ALFAROL [Concomitant]
     Route: 065
     Dates: start: 20120901, end: 20120929
  7. ALFAROL [Concomitant]
     Route: 065
     Dates: start: 20121013, end: 20121117

REACTIONS (2)
  - Diverticulitis [Not Recovered/Not Resolved]
  - Hypocalcaemia [Recovered/Resolved]
